FAERS Safety Report 11127333 (Version 1)
Quarter: 2015Q2

REPORT INFORMATION
  Report Type: Spontaneous
  Country: None (occurrence: None)
  Receive Date: 20150520
  Receipt Date: 20150520
  Transmission Date: 20150821
  Serious: Yes (Other)
  Sender: FDA-Public Use
  Company Number: None

PATIENT
  Sex: Female
  Weight: 59.42 kg

DRUGS (1)
  1. COLCHICINE - GENERIC [Suspect]
     Active Substance: COLCHICINE
     Dosage: 30
     Route: 048

REACTIONS (7)
  - Nausea [None]
  - Product substitution issue [None]
  - Headache [None]
  - Oedema [None]
  - Arthralgia [None]
  - Vomiting [None]
  - Anxiety [None]
